FAERS Safety Report 9661241 (Version 1)
Quarter: 2013Q4

REPORT INFORMATION
  Report Type: Spontaneous
  Country: US (occurrence: US)
  Receive Date: 20131031
  Receipt Date: 20131031
  Transmission Date: 20140711
  Serious: Yes (Other)
  Sender: FDA-Public Use
  Company Number: US-ASTRAZENECA-2013SE78918

PATIENT
  Age: 46 Year
  Sex: Female

DRUGS (5)
  1. BRILINTA [Suspect]
     Indication: ISCHAEMIC HEART DISEASE PROPHYLAXIS
     Route: 048
     Dates: start: 201309, end: 20131024
  2. ASPIRIN [Concomitant]
     Indication: ISCHAEMIC HEART DISEASE PROPHYLAXIS
  3. UNSPECIFIED STATIN [Concomitant]
  4. UNSPECIFIED BETA-BLOCKER [Concomitant]
  5. PLAVIX [Concomitant]

REACTIONS (1)
  - Myocardial infarction [Unknown]
